FAERS Safety Report 17689115 (Version 1)
Quarter: 2020Q2

REPORT INFORMATION
  Report Type: Report from Study
  Country: GB (occurrence: GB)
  Receive Date: 20200421
  Receipt Date: 20200421
  Transmission Date: 20200714
  Serious: Yes (Other)
  Sender: FDA-Public Use
  Company Number: GB-MYLANLABS-2020M1037912

PATIENT
  Age: 48 Year
  Sex: Female

DRUGS (42)
  1. LANSOPRAZOLE. [Concomitant]
     Active Substance: LANSOPRAZOLE
     Indication: DYSPHAGIA
     Dosage: 30 MILLIGRAM, QD
     Route: 048
     Dates: start: 20180619
  2. CARVEDILOL. [Concomitant]
     Active Substance: CARVEDILOL
     Indication: EJECTION FRACTION DECREASED
     Dosage: 37.5 MILLIGRAM, QD
     Route: 048
     Dates: start: 20180621, end: 20180724
  3. CYCLIZINE [Concomitant]
     Active Substance: CYCLIZINE
     Indication: DYSPHAGIA
     Dosage: 50 MILLIGRAM
     Route: 048
     Dates: start: 20180619
  4. SALBUTAMOL [Concomitant]
     Active Substance: ALBUTEROL
     Dosage: UNK (0.5 DAY)
  5. TRASTUZUMAB. [Suspect]
     Active Substance: TRASTUZUMAB
     Dosage: 350 MILLIGRAM, Q3W
     Route: 042
     Dates: start: 20160629, end: 20180524
  6. TRASTUZUMAB. [Suspect]
     Active Substance: TRASTUZUMAB
     Dosage: DOSE REDUCED
     Route: 042
     Dates: start: 20160516, end: 20160516
  7. FILGRASTIM [Concomitant]
     Active Substance: FILGRASTIM
     Indication: NEUTROPENIA
     Dosage: 300 MICROGRAM
     Route: 058
  8. DEXAMETHASONE. [Concomitant]
     Active Substance: DEXAMETHASONE
     Dosage: 8 MILLIGRAM
     Route: 048
  9. CARVEDILOL. [Concomitant]
     Active Substance: CARVEDILOL
     Dosage: 12.5 MILLIGRAM
  10. OMEPRAZOLE. [Concomitant]
     Active Substance: OMEPRAZOLE
     Dosage: 20 MILLIGRAM
     Route: 048
  11. ZOPICLONE [Concomitant]
     Active Substance: ZOPICLONE
     Dosage: UNK
     Route: 048
  12. MORPHINE SULFATE. [Concomitant]
     Active Substance: MORPHINE SULFATE
     Indication: BACK PAIN
     Dosage: 5 MILLIGRAM AS NEEDED
     Route: 048
     Dates: start: 20180822
  13. PERTUZUMAB. [Suspect]
     Active Substance: PERTUZUMAB
     Dosage: 840 MILLIGRAM, QD
     Route: 042
     Dates: start: 20160516
  14. NYSTATIN. [Concomitant]
     Active Substance: NYSTATIN
     Dosage: UNK
     Route: 048
     Dates: start: 20160525
  15. PARACETAMOL [Concomitant]
     Active Substance: ACETAMINOPHEN
     Dosage: 1 GRAM
     Route: 048
  16. CO-AMOXICLAV                       /00756801/ [Concomitant]
     Active Substance: AMOXICILLIN\CLAVULANIC ACID
     Indication: RESPIRATORY TRACT INFECTION
     Dosage: 1 TABLET, 0.33 DAY
     Route: 048
     Dates: start: 20171108, end: 20171115
  17. IBUPROFEN. [Concomitant]
     Active Substance: IBUPROFEN
     Dosage: UNK
     Route: 048
  18. MORPHINE SULFATE. [Concomitant]
     Active Substance: MORPHINE SULFATE
     Dosage: 10 MILLIGRAM
     Route: 048
     Dates: start: 20180822
  19. HYOSCINE N-BUTYLBROMIDE [Concomitant]
     Active Substance: BUTYLSCOPOLAMINE
     Indication: SALIVARY HYPERSECRETION
     Dosage: 20 MILLIGRAM, 0.33 DAY
     Route: 048
     Dates: start: 20180619
  20. DOCETAXEL. [Suspect]
     Active Substance: DOCETAXEL
     Dosage: 124 MILLIGRAM, Q3W
     Route: 042
     Dates: start: 20160517, end: 20160609
  21. DOCETAXEL. [Suspect]
     Active Substance: DOCETAXEL
     Dosage: 85 MILLIGRAM, Q3W
     Route: 042
     Dates: start: 20160811, end: 20160831
  22. CETIRIZINE [Concomitant]
     Active Substance: CETIRIZINE HYDROCHLORIDE
     Dosage: UNK
     Route: 048
  23. FORTISIP [Concomitant]
     Active Substance: CARBOHYDRATES\FATTY ACIDS\MINERALS\PROTEIN\VITAMINS
     Indication: WEIGHT DECREASED
     Dosage: UNK
     Route: 048
     Dates: start: 20160525
  24. TRAMADOL. [Concomitant]
     Active Substance: TRAMADOL
     Dosage: 50 MILLIGRAM
     Route: 048
     Dates: start: 20160429
  25. AMETOP                             /00041401/ [Concomitant]
     Dosage: 4 PERCENT
     Route: 061
     Dates: start: 20160831
  26. CALCICHEW D3 FORTE [Concomitant]
     Active Substance: CALCIUM\CHOLECALCIFEROL
     Dosage: UNK
     Route: 048
     Dates: start: 20180822
  27. CODEINE [Concomitant]
     Active Substance: CODEINE
     Dosage: 30 MILLIGRAM, 0.25 DAY
     Route: 048
     Dates: start: 20191009
  28. PERTUZUMAB. [Suspect]
     Active Substance: PERTUZUMAB
     Dosage: 840 MILLIGRAM, Q3W
     Route: 042
     Dates: start: 20160606, end: 20180524
  29. DOCETAXEL. [Suspect]
     Active Substance: DOCETAXEL
     Dosage: 100 MILLIGRAM, Q3W
     Route: 042
     Dates: start: 20160629, end: 20160720
  30. IRON ISOMALTOSIDE 1000 [Concomitant]
     Active Substance: IRON ISOMALTOSIDE 1000
     Indication: BLOOD IRON DECREASED
     Dosage: 100 MILLIGRAM, QD
     Route: 030
     Dates: start: 20180626, end: 20180627
  31. LOPERAMIDE [Concomitant]
     Active Substance: LOPERAMIDE
     Dosage: AS NEEDED.
     Route: 048
     Dates: start: 20160516
  32. TRASTUZUMAB. [Suspect]
     Active Substance: TRASTUZUMAB
     Dosage: DOSE REDUCED
     Route: 042
     Dates: start: 20160606
  33. BISOPROLOL [Concomitant]
     Active Substance: BISOPROLOL
     Dosage: 5 MILLIGRAM, QD
     Route: 048
     Dates: start: 20181030
  34. CANDESARTAN. [Concomitant]
     Active Substance: CANDESARTAN
     Dosage: 8 MILLIGRAM, QD
     Route: 048
     Dates: start: 20180724
  35. CANDESARTAN. [Concomitant]
     Active Substance: CANDESARTAN
     Dosage: 8 MILLIGRAM
     Route: 048
  36. CARVEDILOL. [Concomitant]
     Active Substance: CARVEDILOL
     Dosage: 6.25 MILLIGRAM
     Route: 048
     Dates: start: 20180724, end: 20181030
  37. ZOLEDRONIC ACID. [Concomitant]
     Active Substance: ZOLEDRONIC ACID
     Indication: BACK PAIN
     Dosage: 4 MILLIGRAM
     Route: 042
     Dates: start: 20180822
  38. FORTISIP [Concomitant]
     Active Substance: CARBOHYDRATES\FATTY ACIDS\MINERALS\PROTEIN\VITAMINS
     Dosage: UNK, AS NEEDED
     Route: 048
     Dates: start: 20190123
  39. BUDESONIDE. [Concomitant]
     Active Substance: BUDESONIDE
     Dosage: 9 MILLIGRAM
     Route: 048
     Dates: start: 20191016
  40. NAPROXEN. [Concomitant]
     Active Substance: NAPROXEN
     Dosage: 250 MILLIGRAM
     Route: 048
  41. MENTHOL;PARAFFIN, LIQUID;PETROLATUM [Concomitant]
     Dosage: 2 PERCENT
     Route: 061
     Dates: start: 20160525
  42. BENZYDAMINE HYDROCHLORIDE [Concomitant]
     Active Substance: BENZYDAMINE HYDROCHLORIDE
     Dosage: 15 MILLILITER
     Route: 060
     Dates: start: 20160525

REACTIONS (3)
  - Diarrhoea [Not Recovered/Not Resolved]
  - Deep vein thrombosis [Recovered/Resolved]
  - Mucosal inflammation [Not Recovered/Not Resolved]

NARRATIVE: CASE EVENT DATE: 201606
